FAERS Safety Report 6860895-9 (Version None)
Quarter: 2010Q2

REPORT INFORMATION
  Report Type: 
  Country: None (occurrence: None)
  Receive Date: 20100528
  Receipt Date: 20080715
  Transmission Date: 20101027
  Serious: Yes (Other)
  Sender: FDA-Public Use
  Company Number: CIP08000593

PATIENT
  Age: 64 Year
  Sex: Female

DRUGS (12)
  1. ACTONEL [Suspect]
     Indication: OSTEOPOROSIS
     Dosage: 5 MG DAILY, ORAL
     Route: 048
     Dates: start: 20010209, end: 20010228
  2. FOSAMAX [Suspect]
     Indication: OSTEOPOROSIS
     Dosage: 70 MG ONCE WEEKLY, ORAL
     Route: 048
     Dates: start: 20030612, end: 20051214
  3. CALCIUM +VIT D (CALCIUM, COLECALCIFEROL) [Concomitant]
  4. PREMARIN [Concomitant]
  5. ASPIRIN [Concomitant]
  6. INDERAL LA [Concomitant]
  7. ACCUPRIL [Concomitant]
  8. ZESTRIL [Concomitant]
  9. BACTRIM DS [Concomitant]
  10. CIPRO [Concomitant]
  11. MACROBID /00024401/ (NITROFURANTOIN) [Concomitant]
  12. KEFLEX /00145501/ (CEFALEXIN) [Concomitant]

REACTIONS (20)
  - ABDOMINAL DISCOMFORT [None]
  - BONE DISORDER [None]
  - DEVICE FAILURE [None]
  - FACE OEDEMA [None]
  - GINGIVAL BLEEDING [None]
  - GINGIVAL RECESSION [None]
  - GINGIVITIS [None]
  - HYPOAESTHESIA ORAL [None]
  - INFECTION [None]
  - JAW DISORDER [None]
  - MALOCCLUSION [None]
  - MYALGIA [None]
  - NERVE INJURY [None]
  - ORAL INFECTION [None]
  - ORAL MUCOSAL ERYTHEMA [None]
  - OSTEONECROSIS [None]
  - PAIN IN JAW [None]
  - PERIODONTITIS [None]
  - SWELLING FACE [None]
  - VERTIGO [None]
